FAERS Safety Report 20400191 (Version 2)
Quarter: 2022Q1

REPORT INFORMATION
  Report Type: Spontaneous
  Country: US (occurrence: US)
  Receive Date: 20220131
  Receipt Date: 20220201
  Transmission Date: 20220424
  Serious: No
  Sender: FDA-Public Use
  Company Number: US-ABBVIE-21K-163-3926416-00

PATIENT
  Age: 25 Year
  Sex: Female
  Weight: 68.100 kg

DRUGS (6)
  1. HUMIRA [Suspect]
     Active Substance: ADALIMUMAB
     Indication: Rheumatoid arthritis
     Route: 058
     Dates: start: 202012
  2. VITAMIN D [Concomitant]
     Active Substance: VITAMIN D NOS
     Indication: Dry eye
  3. VITAMIN C [Concomitant]
     Active Substance: ASCORBIC ACID
     Indication: Dry eye
  4. D-MANNOSE [Concomitant]
     Indication: Urinary tract disorder prophylaxis
  5. PREBIOTICS [Concomitant]
     Indication: Product used for unknown indication
  6. PROBIOTICS NOS [Concomitant]
     Active Substance: PROBIOTICS NOS
     Indication: Product used for unknown indication

REACTIONS (2)
  - Drug ineffective [Not Recovered/Not Resolved]
  - Arthralgia [Not Recovered/Not Resolved]

NARRATIVE: CASE EVENT DATE: 20210528
